FAERS Safety Report 8000307-5 (Version None)
Quarter: 2011Q4

REPORT INFORMATION
  Report Type: 
  Country: None (occurrence: None)
  Receive Date: 20111220
  Receipt Date: 20111220
  Transmission Date: 20120403
  Serious: Yes (Disabling, Other)
  Sender: FDA-Public Use
  Company Number: None

PATIENT
  Age: 55 Year
  Sex: Female
  Weight: 53.5244 kg

DRUGS (1)
  1. HYDRALAZINE HCL [Suspect]
     Indication: BLOOD PRESSURE ABNORMAL
     Dosage: 10 MG 4 DAY ORALLY
     Route: 048
     Dates: start: 20110502, end: 20110516

REACTIONS (12)
  - IMPAIRED DRIVING ABILITY [None]
  - MOOD SWINGS [None]
  - ANGER [None]
  - HYPOAESTHESIA [None]
  - BONE DISORDER [None]
  - FINGER DEFORMITY [None]
  - ANXIETY [None]
  - FEELING COLD [None]
  - ARTHRALGIA [None]
  - VISION BLURRED [None]
  - ABDOMINAL PAIN UPPER [None]
  - BLOOD URINE PRESENT [None]
